FAERS Safety Report 25891101 (Version 4)
Quarter: 2025Q4

REPORT INFORMATION
  Report Type: Spontaneous
  Country: US (occurrence: US)
  Receive Date: 20251007
  Receipt Date: 20251105
  Transmission Date: 20260117
  Serious: Yes (Hospitalization, Other)
  Sender: LIQUIDIA TECHNOLOGIES
  Company Number: US-LIQUIDIA TECHNOLOGIES, INC.-LIQ-2025-000372

PATIENT

DRUGS (7)
  1. YUTREPIA [Suspect]
     Active Substance: TREPROSTINIL SODIUM
     Indication: Pulmonary arterial hypertension
     Dosage: 132.5 MICROGRAM, QID (79.5 MCG + 53MCG)
     Route: 055
     Dates: start: 202507, end: 202507
  2. YUTREPIA [Suspect]
     Active Substance: TREPROSTINIL SODIUM
     Indication: Pulmonary arterial hypertension
     Dosage: 185.5 MICROGRAM, QID (106 MCG+79.5 MCG)
     Route: 055
     Dates: start: 202507, end: 202508
  3. YUTREPIA [Suspect]
     Active Substance: TREPROSTINIL SODIUM
     Indication: Pulmonary arterial hypertension
     Dosage: 159 MICROGRAM, QID
     Route: 055
     Dates: start: 202508
  4. YUTREPIA [Suspect]
     Active Substance: TREPROSTINIL SODIUM
     Dosage: 79.5 MICROGRAM, QID
     Route: 055
     Dates: start: 202507
  5. TADALAFIL [Concomitant]
     Active Substance: TADALAFIL
     Indication: Product used for unknown indication
     Dosage: UNK
     Route: 065
  6. TYVASO [Concomitant]
     Active Substance: TREPROSTINIL
     Indication: Pulmonary arterial hypertension
     Dosage: UNK
     Route: 055
     Dates: start: 202402, end: 2025
  7. TYVASO [Concomitant]
     Active Substance: TREPROSTINIL
     Dosage: 90 MICROGRAM, QID
     Route: 055

REACTIONS (15)
  - Hypervolaemia [Unknown]
  - Unevaluable event [Unknown]
  - Respiratory distress [Unknown]
  - Respiratory rate increased [Unknown]
  - Heart rate increased [Unknown]
  - Vaginal haemorrhage [Unknown]
  - Anxiety [Unknown]
  - Product residue present [Unknown]
  - Adverse event [Unknown]
  - Oedema [Unknown]
  - Presyncope [Recovered/Resolved]
  - Throat tightness [Unknown]
  - Cough [Unknown]
  - Dyspnoea [Unknown]
  - Treatment failure [Unknown]

NARRATIVE: CASE EVENT DATE: 20250101
